FAERS Safety Report 7321335-9 (Version None)
Quarter: 2011Q1

REPORT INFORMATION
  Report Type: 
  Country: None (occurrence: None)
  Receive Date: 20110228
  Receipt Date: 20100325
  Transmission Date: 20110831
  Serious: Yes (Other)
  Sender: FDA-Public Use
  Company Number: US-PFIZER INC-2010039105

PATIENT
  Age: 55 Year
  Sex: Female

DRUGS (1)
  1. GEODON [Suspect]
     Dosage: 40 MG, 2X/DAY

REACTIONS (3)
  - MUSCLE TIGHTNESS [None]
  - CEREBROVASCULAR ACCIDENT [None]
  - EXTRAPYRAMIDAL DISORDER [None]
